FAERS Safety Report 21016636 (Version 2)
Quarter: 2022Q3

REPORT INFORMATION
  Report Type: Spontaneous
  Country: FR (occurrence: FR)
  Receive Date: 20220628
  Receipt Date: 20220715
  Transmission Date: 20221027
  Serious: Yes (Hospitalization)
  Sender: FDA-Public Use
  Company Number: None

PATIENT
  Age: 90 Year
  Sex: Female
  Weight: 64 kg

DRUGS (9)
  1. VENLAFAXINE [Interacting]
     Active Substance: VENLAFAXINE HYDROCHLORIDE
     Indication: Anxiety
     Dosage: 37.5 MILLIGRAM, QD (37.5 MG, LONG COURSE)
     Route: 048
  2. CALCIPARINE [Interacting]
     Active Substance: HEPARIN CALCIUM
     Indication: Deep vein thrombosis
     Dosage: 1.2 MILLILITER, QD
     Route: 058
     Dates: start: 20211021, end: 20211116
  3. CALCIPARINE [Interacting]
     Active Substance: HEPARIN CALCIUM
     Dosage: 0.6 MILLILITER (0.6 ML)
     Route: 058
     Dates: start: 20211021, end: 20211116
  4. WARFARIN SODIUM [Suspect]
     Active Substance: WARFARIN SODIUM
     Indication: Product used for unknown indication
     Dosage: UNK
     Route: 065
  5. PRAVASTATIN [Concomitant]
     Active Substance: PRAVASTATIN
     Dosage: 10 MILLIGRAM (PRAVASTATIN CNS 10MG: 0-1-0 )
     Route: 065
  6. LEVOTHYROXINE [Concomitant]
     Active Substance: LEVOTHYROXINE
     Dosage: 100 MICROGRAM (LEVOTHYROX 100UG: 1-0-0)
     Route: 065
  7. ALLOPURINOL [Concomitant]
     Active Substance: ALLOPURINOL
     Dosage: 100 MILLIGRAM (100 MG)
     Route: 065
  8. OXAZEPAM [Concomitant]
     Active Substance: OXAZEPAM
     Dosage: 10 MILLIGRAM, QD (SERESTA 10MG: 0-0-1)
     Route: 065
  9. PINDOLOL [Concomitant]
     Active Substance: PINDOLOL
     Dosage: 15 MILLIGRAM (PINDOLOL 15MG: 0.5-0-0 )
     Route: 065

REACTIONS (2)
  - Haematoma muscle [Not Recovered/Not Resolved]
  - Drug interaction [Unknown]

NARRATIVE: CASE EVENT DATE: 20211025
